FAERS Safety Report 4585529-8 (Version None)
Quarter: 2005Q1

REPORT INFORMATION
  Report Type: 
  Country: None (occurrence: None)
  Receive Date: 20050217
  Receipt Date: 20050208
  Transmission Date: 20050727
  Serious: Yes (Other)
  Sender: FDA-Public Use
  Company Number: US-ROCHE-395008

PATIENT
  Age: 15 Year
  Sex: Male

DRUGS (2)
  1. ACCUTANE [Suspect]
     Indication: ACNE
     Route: 048
  2. STEROIDS NOS [Suspect]
     Indication: ASTHMA
     Route: 065

REACTIONS (3)
  - DEPRESSED MOOD [None]
  - LIP DRY [None]
  - SUICIDAL IDEATION [None]
